FAERS Safety Report 5146687-X (Version None)
Quarter: 2006Q4

REPORT INFORMATION
  Report Type: 
  Country: None (occurrence: None)
  Receive Date: 20061109
  Receipt Date: 20061013
  Transmission Date: 20070319
  Serious: Yes (Other)
  Sender: FDA-Public Use
  Company Number: PHFR2006GB03092

PATIENT
  Age: 84 Year
  Sex: Male

DRUGS (4)
  1. LITHIUM CARBONATE [Concomitant]
     Indication: DEPRESSION
     Dosage: 400MG/DAY
     Route: 048
  2. VENLAFAXIINE HCL [Concomitant]
     Indication: DEPRESSION
     Dosage: 150MG/DAY
     Route: 048
  3. ZOPICLONE [Concomitant]
     Indication: INSOMNIA
     Dosage: 7.5MG/DAY
     Route: 048
  4. CLOZARIL [Suspect]
     Indication: SCHIZOPHRENIA
     Dosage: 100MG/DAY
     Route: 048
     Dates: start: 20060814, end: 20061007

REACTIONS (3)
  - DIZZINESS [None]
  - DYSKINESIA [None]
  - FALL [None]
